FAERS Safety Report 13077144 (Version 1)
Quarter: 2016Q4

REPORT INFORMATION
  Report Type: Spontaneous
  Country: US (occurrence: US)
  Receive Date: 20161230
  Receipt Date: 20161230
  Transmission Date: 20170207
  Serious: Yes (Hospitalization, Other)
  Sender: FDA-Public Use
  Company Number: US-BAUSCH-BL-2016-032500

PATIENT
  Age: 68 Year
  Sex: Female

DRUGS (1)
  1. XIFAXAN [Suspect]
     Active Substance: RIFAXIMIN
     Indication: HEPATIC FAILURE
     Route: 065
     Dates: start: 20160805

REACTIONS (6)
  - Urinary tract infection [Unknown]
  - Disease progression [Unknown]
  - Fall [Unknown]
  - Malaise [Unknown]
  - Ammonia increased [Unknown]
  - Femur fracture [Unknown]

NARRATIVE: CASE EVENT DATE: 201609
